FAERS Safety Report 5842090-5 (Version None)
Quarter: 2008Q3

REPORT INFORMATION
  Report Type: 
  Country: None (occurrence: None)
  Receive Date: 20080731
  Receipt Date: 20080618
  Transmission Date: 20090109
  Serious: No
  Sender: FDA-Public Use
  Company Number: US200806004425

PATIENT
  Age: 44 Year
  Sex: Female
  Weight: 62.1 kg

DRUGS (5)
  1. BYETTA [Suspect]
     Indication: TYPE 2 DIABETES MELLITUS
     Dosage: 5 UG, 2/D, SUBCUTANEOUS; 5 UG DAILY (1/D), SUBCUTANEOUS
     Route: 058
     Dates: start: 20080401, end: 20080401
  2. BYETTA [Suspect]
     Indication: TYPE 2 DIABETES MELLITUS
     Dosage: 5 UG, 2/D, SUBCUTANEOUS; 5 UG DAILY (1/D), SUBCUTANEOUS
     Route: 058
     Dates: start: 20080401, end: 20080601
  3. BYETTA [Suspect]
     Indication: TYPE 2 DIABETES MELLITUS
     Dosage: 5 UG, 2/D, SUBCUTANEOUS; 5 UG DAILY (1/D), SUBCUTANEOUS
     Route: 058
     Dates: start: 20080601
  4. METFORMIN HCL [Concomitant]
  5. LISINOPRIL/USA/ (LISINOPRIL) [Concomitant]

REACTIONS (5)
  - DRUG INEFFECTIVE [None]
  - GLYCOSYLATED HAEMOGLOBIN INCREASED [None]
  - NAUSEA [None]
  - VOMITING [None]
  - WEIGHT DECREASED [None]
